FAERS Safety Report 8251287-9 (Version None)
Quarter: 2012Q2

REPORT INFORMATION
  Report Type: 
  Country: None (occurrence: None)
  Receive Date: 20120402
  Receipt Date: 20120326
  Transmission Date: 20120825
  Serious: Yes (Other)
  Sender: FDA-Public Use
  Company Number: JP-ABBOTT-11P-087-0722267-00

PATIENT
  Sex: Male
  Weight: 60 kg

DRUGS (2)
  1. DICLOFENAC SODIUM [Concomitant]
     Indication: ANKYLOSING SPONDYLITIS
     Dosage: 75 MG DAILY
     Route: 048
  2. HUMIRA [Suspect]
     Indication: ANKYLOSING SPONDYLITIS
     Route: 058
     Dates: start: 20110412, end: 20110426

REACTIONS (4)
  - DYSPHORIA [None]
  - COLD SWEAT [None]
  - ANAPHYLACTIC SHOCK [None]
  - MALAISE [None]
